FAERS Safety Report 7810843-X (Version None)
Quarter: 2011Q4

REPORT INFORMATION
  Report Type: 
  Country: None (occurrence: None)
  Receive Date: 20111012
  Receipt Date: 20111012
  Transmission Date: 20120403
  Serious: Yes (Hospitalization)
  Sender: FDA-Public Use
  Company Number: None

PATIENT
  Sex: Male
  Weight: 81.5 kg

DRUGS (10)
  1. IBUPROFEN [Concomitant]
  2. DIPHENHYDRAMINE HCL [Concomitant]
  3. FLOMAX [Concomitant]
  4. FENTANYL [Concomitant]
  5. PROCHLORPERAZINE MALEATE [Concomitant]
  6. AMLODIPINE BESYLATE [Concomitant]
  7. AVODART [Concomitant]
  8. TORISEL [Suspect]
     Indication: PROSTATE CANCER
     Dosage: 25MG Q WEEK IV
     Route: 042
     Dates: start: 20110819, end: 20110902
  9. CALCIUM CARBONATE [Concomitant]
  10. MOTRIN [Concomitant]

REACTIONS (3)
  - NEOPLASM MALIGNANT [None]
  - SPINAL CORD COMPRESSION [None]
  - PROSTATE CANCER [None]
